FAERS Safety Report 14963174 (Version 1)
Quarter: 2018Q3

REPORT INFORMATION
  Report Type: Spontaneous
  Country: US (occurrence: US)
  Receive Date: 20180601
  Receipt Date: 20180601
  Transmission Date: 20181010
  Serious: No
  Sender: FDA-Public Use
  Company Number: US-GLAXOSMITHKLINE-US2018GSK097347

PATIENT
  Sex: Male

DRUGS (1)
  1. HABITROL GUM ORAL GUM [Suspect]
     Active Substance: NICOTINE
     Indication: SMOKING CESSATION THERAPY
     Dosage: UNK

REACTIONS (3)
  - Dysbacteriosis [Unknown]
  - Faeces soft [Unknown]
  - Wrong technique in product usage process [Unknown]
